FAERS Safety Report 9486399 (Version 1)
Quarter: 2013Q3

REPORT INFORMATION
  Report Type: Spontaneous
  Country: US (occurrence: None)
  Receive Date: 20130827
  Receipt Date: 20130827
  Transmission Date: 20140515
  Serious: Yes (Other)
  Sender: FDA-Public Use
  Company Number: 2103GMK006584

PATIENT
  Sex: Female

DRUGS (10)
  1. MUPIROCIN [Suspect]
     Indication: ABDOMINAL WALL CYST
     Route: 061
     Dates: start: 20130801, end: 20130801
  2. LOPERAMIDE (LOPERAMIDE) [Concomitant]
  3. PREVACID (LANSOPRAZOLE) [Concomitant]
  4. FLORASTOR (SACCHAROMYCES BOULARDII) [Concomitant]
  5. LORAZEPAM (LORAZEPAM) [Concomitant]
  6. SERTRALINE (SERTRALINE) [Concomitant]
  7. MULTIVITAMINS (ASCORBIC ACID, ERGOCALCIFEROL, FOLIC ACID, NICOTINAMIDE, PANTHENOL, RETINOL, RIBOFLAVIN, THIAMINE HYDROCHLORIDE) [Concomitant]
  8. METFORMIN (METFORMIN) [Concomitant]
  9. DILTIAZEM [Concomitant]
  10. METOPROLOL (METOPROLOL) [Concomitant]

REACTIONS (5)
  - Vaginal haemorrhage [None]
  - Diarrhoea [None]
  - Dizziness [None]
  - Headache [None]
  - Nausea [None]
